FAERS Safety Report 16592432 (Version 1)
Quarter: 2019Q3

REPORT INFORMATION
  Report Type: Spontaneous
  Country: US (occurrence: US)
  Receive Date: 20190718
  Receipt Date: 20190718
  Transmission Date: 20191004
  Serious: No
  Sender: FDA-Public Use
  Company Number: US-NOVOPROD-660369

PATIENT
  Age: 68 Year
  Sex: Female

DRUGS (2)
  1. TRESIBA [Suspect]
     Active Substance: INSULIN DEGLUDEC
     Indication: PRODUCT USED FOR UNKNOWN INDICATION
     Dosage: 11 TO 12 UNITS A DAY
     Route: 058
     Dates: start: 2016
  2. FIASP 3ML PDS290 [Suspect]
     Active Substance: INSULIN ASPART
     Indication: PRODUCT USED FOR UNKNOWN INDICATION
     Dosage: 6 TO 7 UNITS
     Route: 058
     Dates: start: 2017

REACTIONS (2)
  - Blood glucose increased [Recovered/Resolved]
  - Wrong product administered [Unknown]

NARRATIVE: CASE EVENT DATE: 20190425
